FAERS Safety Report 4374772-9 (Version None)
Quarter: 2004Q2

REPORT INFORMATION
  Report Type: 
  Country: None (occurrence: None)
  Receive Date: 20040604
  Receipt Date: 20040525
  Transmission Date: 20050107
  Serious: Yes (Hospitalization)
  Sender: FDA-Public Use
  Company Number: DE-SHR-04-024887

PATIENT
  Age: 45 Year
  Sex: Female

DRUGS (1)
  1. MIRENA [Suspect]
     Dosage: 20 UG/DAY, CONT, INTRA-UTERINE
     Route: 015
     Dates: start: 20040201

REACTIONS (9)
  - EMOTIONAL DISORDER [None]
  - HYPOAESTHESIA [None]
  - MIGRAINE WITH AURA [None]
  - MIGRAINE WITHOUT AURA [None]
  - NAUSEA [None]
  - PHOTOPHOBIA [None]
  - SPEECH DISORDER [None]
  - TRANSIENT ISCHAEMIC ATTACK [None]
  - VISION BLURRED [None]
